FAERS Safety Report 18226313 (Version 2)
Quarter: 2020Q4

REPORT INFORMATION
  Report Type: Spontaneous
  Country: US (occurrence: US)
  Receive Date: 20200903
  Receipt Date: 20201223
  Transmission Date: 20210113
  Serious: No
  Sender: FDA-Public Use
  Company Number: US-TAKEDA-2020TUS036606

PATIENT
  Sex: Male

DRUGS (3)
  1. ALUNBRIG [Suspect]
     Active Substance: BRIGATINIB
     Indication: METASTASES TO PLEURA
  2. ALUNBRIG [Suspect]
     Active Substance: BRIGATINIB
     Indication: METASTASIS
  3. ALUNBRIG [Suspect]
     Active Substance: BRIGATINIB
     Indication: LUNG NEOPLASM MALIGNANT
     Dosage: 60 MILLIGRAM, QD
     Route: 065
     Dates: start: 2015

REACTIONS (2)
  - Arthralgia [Unknown]
  - Asthenia [Unknown]
